FAERS Safety Report 10037683 (Version 1)
Quarter: 2014Q1

REPORT INFORMATION
  Report Type: Spontaneous
  Country: US (occurrence: None)
  Receive Date: 20140324
  Receipt Date: 20140324
  Transmission Date: 20141002
  Serious: Yes (Life-Threatening, Hospitalization)
  Sender: FDA-Public Use
  Company Number: US-ZYDUS-002773

PATIENT
  Sex: Female

DRUGS (5)
  1. VALSARTAN (VALSARTAN) [Suspect]
  2. SPIRONOLACTONE (SPIRONOLACTONE) [Suspect]
  3. WARFARIN (WARFARIN) [Suspect]
  4. COTRIMOXAZOLE [Suspect]
     Indication: URINARY TRACT INFECTION
  5. SOTALOL (SOTALOL) [Suspect]

REACTIONS (7)
  - Hyperkalaemia [None]
  - Asthenia [None]
  - Diarrhoea [None]
  - Bundle branch block left [None]
  - Haemodialysis [None]
  - Electrocardiogram QRS complex prolonged [None]
  - Electrocardiogram T wave amplitude increased [None]
